FAERS Safety Report 17058392 (Version 1)
Quarter: 2019Q4

REPORT INFORMATION
  Report Type: Report from Study
  Country: None (occurrence: GB)
  Receive Date: 20191121
  Receipt Date: 20191121
  Transmission Date: 20200122
  Serious: Yes (Hospitalization)
  Sender: FDA-Public Use
  Company Number: GB-ABBVIE-19K-167-3000381-00

PATIENT
  Age: 51 Year
  Sex: Female

DRUGS (2)
  1. HUMIRA [Suspect]
     Active Substance: ADALIMUMAB
     Indication: PRODUCT USED FOR UNKNOWN INDICATION
     Route: 058
     Dates: start: 201510
  2. IMRALDI [Suspect]
     Active Substance: ADALIMUMAB
     Indication: PSORIATIC ARTHROPATHY
     Route: 058
     Dates: start: 201904

REACTIONS (11)
  - Pharyngitis [Recovered/Resolved]
  - Product substitution issue [Not Recovered/Not Resolved]
  - Cough [Unknown]
  - Blood urine present [Not Recovered/Not Resolved]
  - Renal disorder [Not Recovered/Not Resolved]
  - Protein urine present [Unknown]
  - Pain in extremity [Not Recovered/Not Resolved]
  - Influenza [Unknown]
  - Injection site pain [Unknown]
  - Malaise [Not Recovered/Not Resolved]
  - Rash [Not Recovered/Not Resolved]

NARRATIVE: CASE EVENT DATE: 2019
